FAERS Safety Report 8089265-5 (Version None)
Quarter: 2012Q1

REPORT INFORMATION
  Report Type: 
  Country: None (occurrence: None)
  Receive Date: 20120128
  Receipt Date: 20110629
  Transmission Date: 20120608
  Serious: No
  Sender: FDA-Public Use
  Company Number: US-ABBOTT-11P-163-0717594-00

PATIENT
  Sex: Female

DRUGS (10)
  1. PREDNISONE TAB [Concomitant]
     Indication: RHEUMATOID ARTHRITIS
  2. HUMIRA [Suspect]
     Indication: PSORIASIS
  3. HUMIRA [Suspect]
     Indication: PSORIATIC ARTHROPATHY
  4. FOSAMAX [Concomitant]
     Indication: BONE DISORDER
  5. ARAVA [Concomitant]
     Indication: RHEUMATOID ARTHRITIS
  6. TRAMADOL HCL [Concomitant]
     Indication: PAIN
  7. HUMIRA [Suspect]
     Indication: RHEUMATOID ARTHRITIS
     Dosage: NOT REPORTED
     Route: 058
     Dates: start: 20101001
  8. PREMPRO [Concomitant]
     Indication: BONE DISORDER
  9. PREDNISONE TAB [Concomitant]
     Indication: PSORIASIS
  10. METHOTREXATE [Concomitant]
     Indication: RHEUMATOID ARTHRITIS

REACTIONS (2)
  - DRUG INEFFECTIVE [None]
  - INJECTION SITE PAIN [None]
